FAERS Safety Report 5851491-0 (Version None)
Quarter: 2008Q3

REPORT INFORMATION
  Report Type: 
  Country: None (occurrence: None)
  Receive Date: 20080820
  Receipt Date: 20080808
  Transmission Date: 20090109
  Serious: Yes (Hospitalization)
  Sender: FDA-Public Use
  Company Number: US-JNJFOC-20080802265

PATIENT
  Sex: Male
  Weight: 48 kg

DRUGS (5)
  1. REMICADE [Suspect]
     Route: 042
  2. REMICADE [Suspect]
     Indication: INFLAMMATORY BOWEL DISEASE
     Route: 042
  3. 5-ASA [Concomitant]
     Route: 048
  4. HUMIRA [Concomitant]
  5. METRONIDAZOLE [Concomitant]

REACTIONS (1)
  - PERIRECTAL ABSCESS [None]
